FAERS Safety Report 7953616-X (Version None)
Quarter: 2011Q4

REPORT INFORMATION
  Report Type: 
  Country: None (occurrence: None)
  Receive Date: 20111202
  Receipt Date: 20111123
  Transmission Date: 20120403
  Serious: Yes (Hospitalization)
  Sender: FDA-Public Use
  Company Number: ZA-ELI_LILLY_AND_COMPANY-ZA201111008108

PATIENT
  Sex: Female

DRUGS (4)
  1. HUMULIN N [Suspect]
     Dosage: 8 U, EACH EVENING
     Route: 064
     Dates: start: 20110411, end: 20111014
  2. HUMULIN N [Suspect]
     Indication: GESTATIONAL DIABETES
     Dosage: 8 U, EACH EVENING
     Route: 064
     Dates: start: 20110411, end: 20111014
  3. PROMEGA [Concomitant]
     Indication: VITAMIN SUPPLEMENTATION
     Dosage: 1 DF, QD
     Route: 064
     Dates: end: 20111014
  4. PROMEGA [Concomitant]
     Dosage: 1 DF, QD
     Route: 064
     Dates: end: 20111014

REACTIONS (3)
  - PREMATURE BABY [None]
  - MACROSOMIA [None]
  - FOETAL EXPOSURE DURING PREGNANCY [None]
